FAERS Safety Report 24180274 (Version 4)
Quarter: 2024Q3

REPORT INFORMATION
  Report Type: Spontaneous
  Country: US (occurrence: US)
  Receive Date: 20240806
  Receipt Date: 20240930
  Transmission Date: 20241017
  Serious: No
  Sender: ROCHE
  Company Number: US-ROCHE-10000049388

PATIENT
  Sex: Female
  Weight: 180.0 kg

DRUGS (8)
  1. ACTEMRA ACTPEN [Suspect]
     Active Substance: TOCILIZUMAB
     Indication: Rheumatoid arthritis
     Dosage: 162 MG EVERY OTHER WEEK
     Route: 058
     Dates: start: 20240719
  2. COSENTYX [Suspect]
     Active Substance: SECUKINUMAB
     Indication: Product used for unknown indication
     Route: 065
  3. HUMIRA [Concomitant]
     Active Substance: ADALIMUMAB
  4. ENBREL [Concomitant]
     Active Substance: ETANERCEPT
  5. TALTZ [Concomitant]
     Active Substance: IXEKIZUMAB
  6. BENADRYL [Concomitant]
     Active Substance: DIPHENHYDRAMINE HYDROCHLORIDE
  7. TYLENOL [Concomitant]
     Active Substance: ACETAMINOPHEN
  8. RINVOQ [Concomitant]
     Active Substance: UPADACITINIB

REACTIONS (4)
  - Urticaria [Recovered/Resolved]
  - Pruritus [Recovering/Resolving]
  - Blister [Recovered/Resolved]
  - Diarrhoea [Unknown]
